FAERS Safety Report 9245317 (Version 1)
Quarter: 2013Q2

REPORT INFORMATION
  Report Type: Spontaneous
  Country: CN (occurrence: CN)
  Receive Date: 20130422
  Receipt Date: 20130422
  Transmission Date: 20140414
  Serious: Yes (Death)
  Sender: FDA-Public Use
  Company Number: CN-ASTRAZENECA-2013SE25737

PATIENT
  Sex: 0

DRUGS (2)
  1. PROPOFOL [Suspect]
     Indication: EPILEPSY
     Dosage: 100 MG MORE THAN HALF MINUTES
     Route: 042
  2. PROPOFOL [Suspect]
     Indication: EPILEPSY
     Dosage: 6-12MG / (KG/H) MAINTAIN 24 HOURS, REDUCED SLOWLY
     Route: 042

REACTIONS (1)
  - Death [Fatal]
